FAERS Safety Report 6015269-X (Version None)
Quarter: 2008Q4

REPORT INFORMATION
  Report Type: 
  Country: None (occurrence: None)
  Receive Date: 20081219
  Receipt Date: 20081219
  Transmission Date: 20090506
  Serious: Yes (Other)
  Sender: FDA-Public Use
  Company Number: None

PATIENT
  Age: 55 Year
  Sex: Female
  Weight: 83.9154 kg

DRUGS (2)
  1. OSMOPREP [Suspect]
     Indication: COLONOSCOPY
     Dates: start: 20080918, end: 20080918
  2. OSMOPREP [Suspect]
     Indication: COLONOSCOPY
     Dates: start: 20081201, end: 20081201

REACTIONS (4)
  - BACK PAIN [None]
  - COLONIC POLYP [None]
  - PAIN [None]
  - RESPIRATORY DISORDER [None]
